FAERS Safety Report 21717695 (Version 1)
Quarter: 2022Q4

REPORT INFORMATION
  Report Type: Other
  Country: US (occurrence: US)
  Receive Date: 20221212
  Receipt Date: 20221212
  Transmission Date: 20230113
  Serious: No
  Sender: FDA-Public Use
  Company Number: US-GBT-015216

PATIENT
  Sex: Female

DRUGS (4)
  1. OXBRYTA [Suspect]
     Active Substance: VOXELOTOR
     Indication: Sickle cell disease
     Route: 048
     Dates: start: 2021
  2. HYDROXYUREA [Suspect]
     Active Substance: HYDROXYUREA
     Dates: start: 2012
  3. HYDROXYUREA [Suspect]
     Active Substance: HYDROXYUREA
  4. HYDROXYUREA [Suspect]
     Active Substance: HYDROXYUREA

REACTIONS (2)
  - Haemoglobin decreased [Recovering/Resolving]
  - Platelet count decreased [Recovering/Resolving]
